FAERS Safety Report 5394834-7 (Version None)
Quarter: 2007Q3

REPORT INFORMATION
  Report Type: 
  Country: None (occurrence: None)
  Receive Date: 20070720
  Receipt Date: 20070710
  Transmission Date: 20080115
  Serious: Yes (Hospitalization)
  Sender: FDA-Public Use
  Company Number: 2007-01805

PATIENT
  Age: 66 Year
  Sex: Male
  Weight: 92.7 kg

DRUGS (41)
  1. VELCADE [Suspect]
     Indication: MULTIPLE MYELOMA
     Dosage: 1.00 MG/M2, INTRAVENOUS
     Route: 042
     Dates: start: 20070523, end: 20070526
  2. VELCADE [Suspect]
     Indication: MULTIPLE MYELOMA
     Dosage: 1.00 MG/M2, INTRAVENOUS
     Route: 042
     Dates: start: 20060503
  3. VELCADE [Suspect]
     Indication: MULTIPLE MYELOMA
     Dosage: 1.00 MG/M2, INTRAVENOUS
     Route: 042
     Dates: start: 20060616
  4. VELCADE [Suspect]
     Indication: MULTIPLE MYELOMA
     Dosage: 1.00 MG/M2, INTRAVENOUS
     Route: 042
     Dates: start: 20070223
  5. THALIDOMIDE [Suspect]
     Indication: MULTIPLE MYELOMA
     Dosage: 100.00 MG, ORAL; 100.00 MG, ORAL; 200.00 MG, ORAL
     Route: 048
     Dates: start: 20070326, end: 20070503
  6. THALIDOMIDE [Suspect]
     Indication: MULTIPLE MYELOMA
     Dosage: 100.00 MG, ORAL; 100.00 MG, ORAL; 200.00 MG, ORAL
     Route: 048
     Dates: start: 20070516, end: 20070519
  7. THALIDOMIDE [Suspect]
     Indication: MULTIPLE MYELOMA
     Dosage: 100.00 MG, ORAL; 100.00 MG, ORAL; 200.00 MG, ORAL
     Route: 048
     Dates: start: 20070523, end: 20070526
  8. THALIDOMIDE [Suspect]
     Indication: MULTIPLE MYELOMA
     Dosage: 100.00 MG, ORAL; 100.00 MG, ORAL; 200.00 MG, ORAL
     Route: 048
     Dates: start: 20060503
  9. THALIDOMIDE [Suspect]
     Indication: MULTIPLE MYELOMA
     Dosage: 100.00 MG, ORAL; 100.00 MG, ORAL; 200.00 MG, ORAL
     Route: 048
     Dates: start: 20060516
  10. THALIDOMIDE [Suspect]
     Indication: MULTIPLE MYELOMA
     Dosage: 100.00 MG, ORAL; 100.00 MG, ORAL; 200.00 MG, ORAL
     Route: 048
     Dates: start: 20070223
  11. DEXAMETHASONE [Suspect]
     Indication: MULTIPLE MYELOMA
     Dosage: 40.00 MG, ORAL
     Route: 048
     Dates: start: 20070523, end: 20070526
  12. DEXAMETHASONE [Suspect]
     Indication: MULTIPLE MYELOMA
     Dosage: 40.00 MG, ORAL
     Route: 048
     Dates: start: 20060503
  13. DEXAMETHASONE [Suspect]
     Indication: MULTIPLE MYELOMA
     Dosage: 40.00 MG, ORAL
     Route: 048
     Dates: start: 20060616
  14. DEXAMETHASONE [Suspect]
     Indication: MULTIPLE MYELOMA
     Dosage: 40.00 MG, ORAL
     Route: 048
     Dates: start: 20070223
  15. CISPLATIN [Suspect]
     Indication: MULTIPLE MYELOMA
     Dosage: 7.50 MG/M2
     Dates: start: 20060503
  16. DOXORUBICIN HCL [Suspect]
     Indication: MULTIPLE MYELOMA
     Dosage: 7.50 MG/M2
     Dates: start: 20070527, end: 20070530
  17. DOXORUBICIN HCL [Suspect]
     Indication: MULTIPLE MYELOMA
     Dosage: 7.50 MG/M2
     Dates: start: 20060503
  18. DOXORUBICIN HCL [Suspect]
     Indication: MULTIPLE MYELOMA
     Dosage: 7.50 MG/M2
     Dates: start: 20060616
  19. DOXORUBICIN HCL [Suspect]
     Indication: MULTIPLE MYELOMA
     Dosage: 7.50 MG/M2
     Dates: start: 20070223
  20. CYCLOPHOSPHAMIDE [Suspect]
     Indication: MULTIPLE MYELOMA
     Dosage: 300.00 MG/M2
     Dates: start: 20070523, end: 20070526
  21. CYCLOPHOSPHAMIDE [Suspect]
     Indication: MULTIPLE MYELOMA
     Dosage: 300.00 MG/M2
     Dates: start: 20060503
  22. CYCLOPHOSPHAMIDE [Suspect]
     Indication: MULTIPLE MYELOMA
     Dosage: 300.00 MG/M2
     Dates: start: 20060616
  23. CYCLOPHOSPHAMIDE [Suspect]
     Indication: MULTIPLE MYELOMA
     Dosage: 300.00 MG/M2
     Dates: start: 20070223
  24. ETOPOSIDE [Suspect]
     Indication: MULTIPLE MYELOMA
     Dosage: 30.00 MG/M2
     Dates: start: 20070523, end: 20070526
  25. ETOPOSIDE [Suspect]
     Indication: MULTIPLE MYELOMA
     Dosage: 30.00 MG/M2
     Dates: start: 20060503
  26. ETOPOSIDE [Suspect]
     Indication: MULTIPLE MYELOMA
     Dosage: 30.00 MG/M2
     Dates: start: 20060616
  27. ETOPOSIDE [Suspect]
     Indication: MULTIPLE MYELOMA
     Dosage: 30.00 MG/M2
     Dates: start: 20070223
  28. MELPHALAN(MELPHALAN) VIAL [Suspect]
     Indication: MULTIPLE MYELOMA
     Dates: start: 20060724, end: 20060724
  29. LEVAQUIN [Concomitant]
  30. DIFLUCAN [Concomitant]
  31. ACYCLOVIR [Concomitant]
  32. LEVOTHYROXINE SODIUM [Concomitant]
  33. COMBIVENT [Concomitant]
  34. EZETIMIBE [Concomitant]
  35. TOPROL-XL [Concomitant]
  36. MAGNESIUM OXIDE (MAGNESIUM OXIDE) [Concomitant]
  37. PROCRIT [Concomitant]
  38. AVANDAMET [Concomitant]
  39. MULTIVITAMINS (ERGOCALCIFEROL, PANTHENOL, NICOTINAMIDE, RIBOFLAVIN, TH [Concomitant]
  40. LOVENOX [Concomitant]
  41. NEUPOGEN [Concomitant]

REACTIONS (16)
  - ABSCESS INTESTINAL [None]
  - ANAEMIA [None]
  - ANOREXIA [None]
  - ASTHENIA [None]
  - COLITIS [None]
  - CONTUSION [None]
  - DIZZINESS POSTURAL [None]
  - DRUG DOSE OMISSION [None]
  - FATIGUE [None]
  - HAEMORRHOIDS [None]
  - LARGE INTESTINE PERFORATION [None]
  - MALAISE [None]
  - MALNUTRITION [None]
  - OESOPHAGITIS [None]
  - ORTHOSTATIC HYPOTENSION [None]
  - SPLENOMEGALY [None]
